FAERS Safety Report 6723649-X (Version None)
Quarter: 2010Q2

REPORT INFORMATION
  Report Type: 
  Country: None (occurrence: None)
  Receive Date: 20100513
  Receipt Date: 20100510
  Transmission Date: 20101027
  Serious: Yes (Death, Hospitalization)
  Sender: FDA-Public Use
  Company Number: PHHY2010FR29880

PATIENT
  Sex: Male

DRUGS (10)
  1. EXELON [Suspect]
     Indication: DEMENTIA ALZHEIMER'S TYPE
     Dosage: 3 MG, QD
     Route: 048
     Dates: start: 20100312, end: 20100319
  2. PIRACETAM MYLAN [Suspect]
     Indication: DEMENTIA ALZHEIMER'S TYPE
     Dosage: 800 MG, TID
     Route: 048
     Dates: end: 20100319
  3. ARICEPT [Suspect]
     Indication: DEMENTIA ALZHEIMER'S TYPE
     Dosage: 5 MG, BID
     Route: 048
     Dates: end: 20100312
  4. GARDENAL [Suspect]
     Indication: EPILEPSY
     Dosage: 50 MG, TID
     Route: 048
     Dates: end: 20100329
  5. HEMIGOXINE NATIVELLE [Suspect]
     Indication: ATRIAL FIBRILLATION
     Dosage: 1 DF, QD
  6. PREVISCAN [Suspect]
     Indication: ATRIAL FIBRILLATION
     Dosage: ALTERNATIVELY 15 MG AND 10 MG QD
     Route: 048
     Dates: end: 20100319
  7. MODOPAR [Suspect]
     Indication: PARKINSON'S DISEASE
     Dosage: 100/25 AND 200/50 MG BID
     Route: 048
     Dates: end: 20100319
  8. ADANCOR [Suspect]
     Dosage: 10 MG, TID
     Route: 048
     Dates: end: 20100319
  9. EXACYL [Suspect]
     Indication: EPISTAXIS
     Dosage: 1500 MG PER DAY
     Route: 048
     Dates: start: 20100312, end: 20100319
  10. STERDEX [Concomitant]
     Dosage: 1 DF, BID

REACTIONS (22)
  - ATRIAL FIBRILLATION [None]
  - BLOOD ALBUMIN DECREASED [None]
  - BLOOD FIBRINOGEN INCREASED [None]
  - CYTOLYTIC HEPATITIS [None]
  - DISSEMINATED INTRAVASCULAR COAGULATION [None]
  - DYSPNOEA [None]
  - EPISTAXIS [None]
  - EXTRAPYRAMIDAL DISORDER [None]
  - FIBRIN DEGRADATION PRODUCTS INCREASED [None]
  - HAEMATOMA [None]
  - HYPONATRAEMIA [None]
  - INDURATION [None]
  - INFLAMMATION [None]
  - MALNUTRITION [None]
  - OXYGEN SATURATION DECREASED [None]
  - PNEUMONIA ASPIRATION [None]
  - PSYCHOMOTOR RETARDATION [None]
  - SOMNOLENCE [None]
  - STAPHYLOCOCCAL INFECTION [None]
  - TACHYPNOEA [None]
  - THROMBOCYTOPENIA [None]
  - URINARY TRACT INFECTION STAPHYLOCOCCAL [None]
